FAERS Safety Report 7771788-7 (Version None)
Quarter: 2011Q3

REPORT INFORMATION
  Report Type: 
  Country: None (occurrence: None)
  Receive Date: 20110922
  Receipt Date: 20110914
  Transmission Date: 20111222
  Serious: Yes (Disabling, Other)
  Sender: FDA-Public Use
  Company Number: CA-ELI_LILLY_AND_COMPANY-CA201109003998

PATIENT
  Age: 65 Year
  Sex: Female

DRUGS (3)
  1. HUMALOG [Suspect]
     Dosage: 20 U, OTHER
     Dates: start: 20060101
  2. HUMALOG [Suspect]
     Dosage: 22 U, EACH EVENING
     Dates: start: 20060101
  3. HUMALOG [Suspect]
     Dosage: 42 U, EACH MORNING
     Dates: start: 20060101

REACTIONS (2)
  - DEAFNESS UNILATERAL [None]
  - BLINDNESS UNILATERAL [None]
